FAERS Safety Report 9320158 (Version 2)
Quarter: 2013Q2

REPORT INFORMATION
  Report Type: Spontaneous
  Country: FR (occurrence: FR)
  Receive Date: 20130530
  Receipt Date: 20130624
  Transmission Date: 20140414
  Serious: Yes (Hospitalization, Other)
  Sender: FDA-Public Use
  Company Number: FR-PFIZER INC-2013162631

PATIENT
  Age: 65 Year
  Sex: Male

DRUGS (12)
  1. ZOLOFT [Suspect]
     Indication: DEPRESSION
     Dosage: 150 MG, DAILY (3 DOSAGE FORMS (DF) DAILY)
     Route: 048
     Dates: start: 20130323, end: 20130415
  2. LAROSCORBINE [Suspect]
     Indication: HYPOVITAMINOSIS
     Dosage: UNK
     Route: 048
     Dates: start: 20130405
  3. STILNOX [Suspect]
     Dosage: 10 MG, DAILY
     Route: 048
     Dates: start: 20130405
  4. VALIUM [Suspect]
     Indication: AGITATION
     Dosage: 10 MG, (1 DF SINGLE)
     Route: 042
     Dates: start: 20130405, end: 20130405
  5. TEGRETOL [Concomitant]
     Indication: EPILEPSY
     Dosage: 600 MG, DAILY (200MG 3 DOSAGE FORMS DAILY)
     Route: 048
  6. MECIR [Concomitant]
     Indication: PROSTATITIS
     Dosage: 0.4 MG, DAILY (1 DF DAILY)
     Route: 048
  7. LOVENOX [Concomitant]
     Dosage: UNK
     Route: 058
  8. HEPT-A-MYL [Concomitant]
     Dosage: 6 DF, DAILY
     Route: 048
  9. NOCTAMID [Concomitant]
     Dosage: 2 DF, DAILY
     Route: 048
  10. SERESTA [Concomitant]
     Dosage: 50 MG, 1X/DAY
     Route: 048
  11. RIFAMYCIN [Concomitant]
     Dosage: UNK
     Route: 047
     Dates: start: 20130405
  12. VITAMIN D3 [Concomitant]
     Dosage: UNK

REACTIONS (9)
  - Major depression [Unknown]
  - Nervous system disorder [Unknown]
  - Extrapyramidal disorder [Unknown]
  - Malnutrition [Unknown]
  - Dysphagia [Unknown]
  - Hypovitaminosis [Unknown]
  - Infection [Unknown]
  - Leukopenia [Recovered/Resolved]
  - Neutropenia [Recovered/Resolved]
